FAERS Safety Report 4793384-6 (Version None)
Quarter: 2005Q4

REPORT INFORMATION
  Report Type: 
  Country: None (occurrence: None)
  Receive Date: 20051005
  Receipt Date: 20050922
  Transmission Date: 20060501
  Serious: Yes (Other)
  Sender: FDA-Public Use
  Company Number: 2005133116

PATIENT
  Sex: Male
  Weight: 79.3795 kg

DRUGS (2)
  1. VIAGRA [Suspect]
     Indication: ERECTILE DYSFUNCTION
     Dosage: 100 MG
     Dates: end: 20050801
  2. VITAMINS [Concomitant]

REACTIONS (3)
  - PAIN [None]
  - PENIS DISORDER [None]
  - TREATMENT NONCOMPLIANCE [None]
